FAERS Safety Report 20997795 (Version 1)
Quarter: 2022Q2

REPORT INFORMATION
  Report Type: Spontaneous
  Country: JP (occurrence: JP)
  Receive Date: 20220623
  Receipt Date: 20220623
  Transmission Date: 20220721
  Serious: Yes (Hospitalization)
  Sender: FDA-Public Use
  Company Number: JP-PFIZER INC-PV202200003173

PATIENT
  Sex: Female

DRUGS (2)
  1. CELECOXIB [Suspect]
     Active Substance: CELECOXIB
     Indication: Pain
     Dosage: 1 DF
  2. CELECOXIB [Suspect]
     Active Substance: CELECOXIB
     Dosage: 2 DF, 2X/DAY( IN THE MORNING AND EVENING)

REACTIONS (1)
  - Lung carcinoma cell type unspecified stage I [Unknown]
